FAERS Safety Report 15273815 (Version 2)
Quarter: 2018Q4

REPORT INFORMATION
  Report Type: Spontaneous
  Country: US (occurrence: US)
  Receive Date: 20180813
  Receipt Date: 20181002
  Transmission Date: 20190204
  Serious: No
  Sender: FDA-Public Use
  Company Number: US-ASTRAZENECA-2018SF02145

PATIENT
  Sex: Male
  Weight: 80.7 kg

DRUGS (1)
  1. BYDUREON [Suspect]
     Active Substance: EXENATIDE
     Indication: BLOOD GLUCOSE
     Route: 058

REACTIONS (3)
  - Needle issue [Not Recovered/Not Resolved]
  - Device malfunction [Unknown]
  - Injection site extravasation [Not Recovered/Not Resolved]
